FAERS Safety Report 8472120-6 (Version None)
Quarter: 2012Q2

REPORT INFORMATION
  Report Type: 
  Country: None (occurrence: None)
  Receive Date: 20120627
  Receipt Date: 20120618
  Transmission Date: 20120825
  Serious: Yes (Other)
  Sender: FDA-Public Use
  Company Number: CN-ASTRAZENECA-2012SE38626

PATIENT
  Age: 77 Year
  Sex: Female

DRUGS (2)
  1. FASLODEX [Suspect]
     Dosage: 1 INJECTION.
     Route: 030
     Dates: start: 20120530
  2. FASLODEX [Suspect]
     Indication: BREAST CANCER
     Dosage: 2 INJECTIONS.
     Route: 030
     Dates: start: 20120430

REACTIONS (3)
  - INFLUENZA [None]
  - VOMITING [None]
  - PYREXIA [None]
